FAERS Safety Report 5339620-9 (Version None)
Quarter: 2007Q2

REPORT INFORMATION
  Report Type: 
  Country: None (occurrence: None)
  Receive Date: 20070525
  Receipt Date: 20070525
  Transmission Date: 20071010
  Serious: Yes (Hospitalization)
  Sender: FDA-Public Use
  Company Number: None

PATIENT
  Sex: Male
  Weight: 70.9 kg

DRUGS (2)
  1. FLUOROURACIL [Suspect]
     Dosage: 22000 MG
     Dates: end: 20070509
  2. ELOXATIN [Suspect]
     Dosage: 660 MG
     Dates: end: 20070509

REACTIONS (2)
  - CHOLANGITIS [None]
  - FEBRILE NEUTROPENIA [None]
